FAERS Safety Report 7676549-5 (Version None)
Quarter: 2011Q3

REPORT INFORMATION
  Report Type: 
  Country: None (occurrence: None)
  Receive Date: 20110811
  Receipt Date: 20110729
  Transmission Date: 20111222
  Serious: Yes (Hospitalization)
  Sender: FDA-Public Use
  Company Number: CH-RANBAXY-2011RR-46663

PATIENT
  Age: 64 Year
  Sex: Female

DRUGS (4)
  1. LORAZEPAM [Suspect]
     Dosage: 3 MG, UNK
     Route: 065
  2. LORAZEPAM [Suspect]
  3. LORAZEPAM [Suspect]
     Indication: PROPHYLAXIS AGAINST ALCOHOLIC WITHDRAWAL SYNDROME
     Dosage: 5-10 MG DAILY
     Route: 065
  4. LORAZEPAM [Suspect]
     Indication: PROPHYLAXIS

REACTIONS (2)
  - DELIRIUM [None]
  - WITHDRAWAL SYNDROME [None]
